FAERS Safety Report 6547183-5 (Version None)
Quarter: 2010Q1

REPORT INFORMATION
  Report Type: 
  Country: None (occurrence: None)
  Receive Date: 20100122
  Receipt Date: 20100113
  Transmission Date: 20100710
  Serious: Yes (Other)
  Sender: FDA-Public Use
  Company Number: GXKR2010GB00714

PATIENT
  Sex: Female

DRUGS (3)
  1. CO-CODAMOL (NGX) [Suspect]
     Dosage: UNK
     Route: 065
     Dates: start: 20061126
  2. MIFEGYNE [Suspect]
     Indication: ABORTION INDUCED
     Dosage: 200 MG, UNK
     Route: 048
     Dates: start: 20091124
  3. MISOPROSTOL [Suspect]
     Indication: ABORTION INDUCED
     Dosage: 800 MG/DAY
     Route: 048
     Dates: start: 20091126

REACTIONS (2)
  - DYSPNOEA [None]
  - SWELLING FACE [None]
